FAERS Safety Report 23100610 (Version 1)
Quarter: 2023Q4

REPORT INFORMATION
  Report Type: Spontaneous
  Country: US (occurrence: None)
  Receive Date: 20231020
  Receipt Date: 20231020
  Transmission Date: 20240110
  Serious: Yes (Hospitalization)
  Sender: FDA-Public Use
  Company Number: None

PATIENT
  Age: 51 Year
  Sex: Male
  Weight: 100 kg

DRUGS (1)
  1. SUCCINYLCHOLINE CHLORIDE [Suspect]
     Active Substance: SUCCINYLCHOLINE CHLORIDE
     Dates: start: 20220816, end: 20220816

REACTIONS (4)
  - Asthenia [None]
  - Respiratory arrest [None]
  - Pseudocholinesterase deficiency [None]
  - Blood cholinesterase decreased [None]

NARRATIVE: CASE EVENT DATE: 20220816
